FAERS Safety Report 11398084 (Version 2)
Quarter: 2015Q4

REPORT INFORMATION
  Report Type: Spontaneous
  Country: IT (occurrence: IT)
  Receive Date: 20150820
  Receipt Date: 20151001
  Transmission Date: 20160304
  Serious: Yes (Disabling)
  Sender: FDA-Public Use
  Company Number: IT-ROCHE-1623075

PATIENT
  Age: 82 Year
  Sex: Female

DRUGS (1)
  1. BONVIVA [Suspect]
     Active Substance: IBANDRONATE SODIUM
     Indication: OSTEOPOROSIS
     Route: 065
     Dates: start: 20070101, end: 20131101

REACTIONS (4)
  - Enterostomy [Unknown]
  - Gingivitis [Unknown]
  - Oedema [Unknown]
  - Purulent discharge [Unknown]

NARRATIVE: CASE EVENT DATE: 20131201
